FAERS Safety Report 7908013-X (Version None)
Quarter: 2011Q4

REPORT INFORMATION
  Report Type: 
  Country: None (occurrence: None)
  Receive Date: 20111110
  Receipt Date: 20111102
  Transmission Date: 20120403
  Serious: Yes (Other)
  Sender: FDA-Public Use
  Company Number: US-ASTRAZENECA-2011SE66662

PATIENT
  Age: 73 Year
  Sex: Female

DRUGS (2)
  1. NEXIUM [Suspect]
     Route: 048
  2. ZANTAC [Concomitant]

REACTIONS (4)
  - GASTRIC ULCER [None]
  - OESOPHAGEAL CARCINOMA [None]
  - OESOPHAGEAL PAIN [None]
  - HYPERCHLORHYDRIA [None]
